FAERS Safety Report 16868041 (Version 1)
Quarter: 2019Q3

REPORT INFORMATION
  Report Type: Spontaneous
  Country: GB (occurrence: GB)
  Receive Date: 20190930
  Receipt Date: 20190930
  Transmission Date: 20191005
  Serious: Yes (Other)
  Sender: FDA-Public Use
  Company Number: GB-PFIZER INC-2019418569

PATIENT

DRUGS (1)
  1. AMIKACIN SULFATE. [Suspect]
     Active Substance: AMIKACIN SULFATE
     Indication: SEPSIS
     Dosage: UNK

REACTIONS (6)
  - Urinary tract infection [Unknown]
  - Drug ineffective [Unknown]
  - Infection [Unknown]
  - Toxicity to various agents [Unknown]
  - Stag horn calculus [Unknown]
  - Suprapubic pain [Unknown]
